FAERS Safety Report 7858391-5 (Version None)
Quarter: 2011Q4

REPORT INFORMATION
  Report Type: 
  Country: None (occurrence: None)
  Receive Date: 20111027
  Receipt Date: 20111012
  Transmission Date: 20120403
  Serious: Yes (Other)
  Sender: FDA-Public Use
  Company Number: PHHY2011TW90582

PATIENT
  Age: 29 Year
  Sex: Female

DRUGS (8)
  1. FLUCONAZOLE [Concomitant]
     Dosage: UNK UKN, UNK
     Route: 048
  2. BUSULFAN [Concomitant]
     Dosage: UNK UKN, UNK
  3. METHOTREXATE [Concomitant]
     Dosage: UNK UKN, UNK
  4. CIPROFLOXACIN [Concomitant]
     Dosage: UNK UKN, UNK
     Route: 048
  5. ACYCLOVIR [Concomitant]
     Indication: HERPES VIRUS INFECTION
     Dosage: 250 MG/M2 EVERY 8 H, UNK
  6. CYCLOSPORINE [Suspect]
     Indication: GRAFT VERSUS HOST DISEASE
     Dosage: UNK UKN, UNK
  7. CYCLOPHOSPHAMIDE [Concomitant]
     Dosage: UNK UKN, UNK
  8. ANTI-THYMOCYTE GLOBULIN NOS [Concomitant]
     Dosage: 10 MG/KG, UNK

REACTIONS (10)
  - HISTIOCYTIC NECROTISING LYMPHADENITIS [None]
  - NECROSIS [None]
  - PYREXIA [None]
  - MALAISE [None]
  - LYMPHADENOPATHY [None]
  - CHIMERISM [None]
  - LYMPHOCYTIC INFILTRATION [None]
  - HISTIOCYTOSIS [None]
  - LYMPH NODE PAIN [None]
  - CELL DEATH [None]
